FAERS Safety Report 9149296 (Version 2)
Quarter: 2013Q1

REPORT INFORMATION
  Report Type: Spontaneous
  Country: US (occurrence: None)
  Receive Date: 20130129
  Receipt Date: 20130211
  Transmission Date: 20140127
  Serious: Yes (Other)
  Sender: FDA-Public Use
  Company Number: 2013SA004101

PATIENT
  Age: 29 Year
  Sex: Female
  Weight: 70.3 kg

DRUGS (2)
  1. ASPERCREME HEAT RELIEVING GEL [Suspect]
     Indication: MYALGIA
     Dates: start: 20130116, end: 20130116
  2. NAPROXEN SODIUM [Concomitant]

REACTIONS (2)
  - Application site pain [None]
  - Chemical injury [None]
